FAERS Safety Report 9975053 (Version 1)
Quarter: 2014Q1

REPORT INFORMATION
  Report Type: Report from Study
  Country: US (occurrence: US)
  Receive Date: 20140306
  Receipt Date: 20140306
  Transmission Date: 20141002
  Serious: No
  Sender: FDA-Public Use
  Company Number: US-ABBVIE-13P-163-1161431-00

PATIENT
  Age: 29 Year
  Sex: Female

DRUGS (12)
  1. HUMIRA [Suspect]
     Indication: COLITIS ULCERATIVE
     Dates: start: 20130729
  2. CYMBALTA [Concomitant]
     Indication: FIBROMYALGIA
  3. UNKNOWN MEDICATION [Concomitant]
     Indication: OBESITY
  4. FLEXERIL [Concomitant]
     Indication: FIBROMYALGIA
     Dosage: TID
  5. LYRICA [Concomitant]
     Indication: FIBROMYALGIA
  6. PREMARIN [Concomitant]
     Indication: OESTROGEN REPLACEMENT THERAPY
  7. LAMICTAL [Concomitant]
     Indication: AFFECTIVE DISORDER
  8. LAMICTAL [Concomitant]
     Indication: DEPRESSION
  9. XYREM [Concomitant]
     Indication: NARCOLEPSY
     Dosage: TWICE NIGHTLY
  10. ADDERALL [Concomitant]
     Indication: NARCOLEPSY
     Dosage: 20 MG MORNING AND 10 MG MIDDAY
  11. PRILOSEC [Concomitant]
     Indication: GASTROOESOPHAGEAL REFLUX DISEASE
  12. NORCO [Concomitant]
     Indication: PAIN
     Dosage: 10/325 UP TO SIX TIMES A DAY AS NEEDED

REACTIONS (2)
  - Rectal haemorrhage [Not Recovered/Not Resolved]
  - Drug ineffective [Not Recovered/Not Resolved]
